FAERS Safety Report 16729845 (Version 1)
Quarter: 2019Q3

REPORT INFORMATION
  Report Type: Spontaneous
  Country: PL (occurrence: PL)
  Receive Date: 20190822
  Receipt Date: 20190822
  Transmission Date: 20191005
  Serious: Yes (Hospitalization, Other)
  Sender: FDA-Public Use
  Company Number: PL-MYLANLABS-2019M1078003

PATIENT
  Age: 37 Year
  Sex: Male

DRUGS (1)
  1. ENTECAVIR. [Suspect]
     Active Substance: ENTECAVIR
     Indication: HEPATITIS B
     Dosage: UNK
     Dates: start: 2015

REACTIONS (5)
  - Hepatic cirrhosis [Unknown]
  - Model for end stage liver disease score abnormal [Unknown]
  - Portal vein thrombosis [Unknown]
  - Alpha 1 foetoprotein abnormal [Unknown]
  - Hepatocellular carcinoma [Unknown]

NARRATIVE: CASE EVENT DATE: 2015
